FAERS Safety Report 20008805 (Version 1)
Quarter: 2021Q4

REPORT INFORMATION
  Report Type: Spontaneous
  Country: JP (occurrence: JP)
  Receive Date: 20211028
  Receipt Date: 20211028
  Transmission Date: 20220303
  Serious: Yes (Death)
  Sender: FDA-Public Use
  Company Number: JP-PFIZER INC-202101395101

PATIENT
  Age: 3 Decade
  Sex: Male
  Weight: 77.9 kg

DRUGS (9)
  1. LORAZEPAM [Suspect]
     Active Substance: LORAZEPAM
  2. QUETIAPINE FUMARATE [Suspect]
     Active Substance: QUETIAPINE FUMARATE
  3. AMITRIPTYLINE [Suspect]
     Active Substance: AMITRIPTYLINE
  4. ARIPIPRAZOLE [Suspect]
     Active Substance: ARIPIPRAZOLE
  5. CLOMIPRAMINE [Suspect]
     Active Substance: CLOMIPRAMINE
  6. DIAZEPAM [Suspect]
     Active Substance: DIAZEPAM
  7. NORTRIPTYLINE [Suspect]
     Active Substance: NORTRIPTYLINE
  8. SULPIRIDE [Suspect]
     Active Substance: SULPIRIDE
  9. SUVOREXANT [Suspect]
     Active Substance: SUVOREXANT

REACTIONS (1)
  - Toxicity to various agents [Fatal]
